FAERS Safety Report 20207169 (Version 3)
Quarter: 2022Q2

REPORT INFORMATION
  Report Type: Spontaneous
  Country: US (occurrence: US)
  Receive Date: 20211220
  Receipt Date: 20220426
  Transmission Date: 20220721
  Serious: No
  Sender: FDA-Public Use
  Company Number: US-PFIZER INC-202101243625

PATIENT
  Age: 83 Year
  Sex: Male
  Weight: 78.93 kg

DRUGS (17)
  1. VYNDAMAX [Suspect]
     Active Substance: TAFAMIDIS
     Indication: Respiratory disorder
     Dosage: 61 MG, 1X/DAY
  2. VYNDAMAX [Suspect]
     Active Substance: TAFAMIDIS
     Indication: Cerebrovascular accident prophylaxis
  3. ELIQUIS [Suspect]
     Active Substance: APIXABAN
     Indication: Blood pressure measurement
     Dosage: 5 MG, 2X/DAY (IN MORNING AND EVENING)
  4. LEVOTHYROXINE [Concomitant]
     Active Substance: LEVOTHYROXINE
     Indication: Thyroid disorder
     Dosage: 50 MG, 1X/DAY (ONCE, HALF HOUR BEFORE BREAKFAST)
  5. CARVEDILOL [Concomitant]
     Active Substance: CARVEDILOL
     Dosage: 6.25 MG, 3X/DAY (X 3, MORNING AND EVENING)
  6. LISINOPRIL [Concomitant]
     Active Substance: LISINOPRIL
     Indication: Blood pressure abnormal
     Dosage: 20 MG, 1X/DAY (AFTER BREAKFAST)
  7. ALLOPURINOL [Concomitant]
     Active Substance: ALLOPURINOL
     Indication: Gout
     Dosage: 100 MG, 2X/DAY (MORNING AND EVENING)
  8. ATORVASTATIN [Concomitant]
     Active Substance: ATORVASTATIN
     Indication: Blood cholesterol abnormal
     Dosage: 20 MG, 1X/DAY (EVENING)
  9. FUROSEMIDE [Concomitant]
     Active Substance: FUROSEMIDE
     Indication: Blood cholesterol
     Dosage: 20 MG (EVERY MORNING AND EVERY OTHER EVENING)
  10. METFORMIN [Concomitant]
     Active Substance: METFORMIN HYDROCHLORIDE
     Indication: Glucose tolerance impaired
     Dosage: 500 MG, 1X/DAY (IN THE EVENING)
  11. TAMSULOSIN [Concomitant]
     Active Substance: TAMSULOSIN
     Indication: Glucose tolerance impaired
     Dosage: 0.4 MG, 1X/DAY (ONE HALF HOUR AFTER SUPPER)
  12. FERROUS SULFATE [Concomitant]
     Active Substance: FERROUS SULFATE
     Indication: Blood iron abnormal
     Dosage: 65 MG, 1X/DAY (IN THE MORNING)
  13. MINERALS\VITAMINS [Concomitant]
     Active Substance: MINERALS\VITAMINS
     Indication: Eye disorder
     Dosage: 0.4 MG
  14. MINERALS\VITAMINS [Concomitant]
     Active Substance: MINERALS\VITAMINS
     Indication: Glucose tolerance impaired
  15. FLAXSEED [Concomitant]
     Active Substance: FLAX SEED
     Indication: Glucose tolerance impaired
     Dosage: 0.4 MG
  16. MIRALAX [Concomitant]
     Active Substance: POLYETHYLENE GLYCOL 3350
     Indication: Glucose tolerance impaired
     Dosage: 0.4 MG
  17. VITAMINS NOS [Concomitant]
     Active Substance: VITAMINS
     Indication: Glucose tolerance impaired
     Dosage: UNK, 1X/DAY
     Route: 065

REACTIONS (3)
  - Off label use [Unknown]
  - Hypoacusis [Unknown]
  - Body height decreased [Unknown]
